FAERS Safety Report 5329731-6 (Version None)
Quarter: 2007Q2

REPORT INFORMATION
  Report Type: 
  Country: None (occurrence: None)
  Receive Date: 20070521
  Receipt Date: 20070516
  Transmission Date: 20071010
  Serious: Yes (Other)
  Sender: FDA-Public Use
  Company Number: SI-BRISTOL-MYERS SQUIBB COMPANY-13781554

PATIENT
  Sex: Male

DRUGS (1)
  1. MONOPRIL [Suspect]
     Route: 048

REACTIONS (1)
  - ACUTE MYELOID LEUKAEMIA [None]
